FAERS Safety Report 14202202 (Version 5)
Quarter: 2024Q4

REPORT INFORMATION
  Report Type: Report from Study
  Country: US (occurrence: US)
  Receive Date: 20171117
  Receipt Date: 20241211
  Transmission Date: 20250114
  Serious: Yes (Death)
  Sender: PFIZER
  Company Number: US-PFIZER INC-2017497241

PATIENT

DRUGS (8)
  1. TACROLIMUS [Suspect]
     Active Substance: TACROLIMUS
     Indication: Prophylaxis against graft versus host disease
     Dosage: UNK (TARGET DOSE OF 10 X 10^6CD34+ CELLS/KG WITH 2 X 10^5 CD3+ T CELLS/KG)
  2. HYDROXYUREA [Concomitant]
     Active Substance: HYDROXYUREA
     Indication: Sickle cell disease
     Dosage: 60 MG/KG, DAILY (DAY -59 - DAY -11)
  3. AZATHIOPRINE [Concomitant]
     Active Substance: AZATHIOPRINE
     Indication: Sickle cell disease
     Dosage: 3 MG/KG, DAILY (DAY -59 - DAY -11)
  4. FLUDARABINE [Concomitant]
     Active Substance: FLUDARABINE PHOSPHATE
     Indication: Sickle cell disease
     Dosage: 30 MG/M2, DAILY
  5. BUSULFAN [Concomitant]
     Active Substance: BUSULFAN
     Indication: Sickle cell disease
     Dosage: 3.2 MG/KG, DAILY
  6. THIOTEPA [Concomitant]
     Active Substance: THIOTEPA
     Indication: Sickle cell disease
     Dosage: 10 MG/KG, DAILY
  7. CYCLOPHOSPHAMIDE [Concomitant]
     Active Substance: CYCLOPHOSPHAMIDE
     Indication: Sickle cell disease
     Dosage: 50 MG/KG, DAILY
  8. LAPINE T-LYMPHOCYTE IMMUNE GLOBULIN [Concomitant]
     Active Substance: LAPINE T-LYMPHOCYTE IMMUNE GLOBULIN
     Indication: Sickle cell disease
     Dosage: 2 MG/KG, DAILY

REACTIONS (1)
  - Acute graft versus host disease [Fatal]
